FAERS Safety Report 5194763-8 (Version None)
Quarter: 2006Q4

REPORT INFORMATION
  Report Type: 
  Country: None (occurrence: None)
  Receive Date: 20061229
  Receipt Date: 20061020
  Transmission Date: 20070319
  Serious: Yes (Hospitalization)
  Sender: FDA-Public Use
  Company Number: JP-ELI_LILLY_AND_COMPANY-JP200610003986

PATIENT
  Age: 54 Year
  Sex: Male
  Weight: 58 kg

DRUGS (8)
  1. OLANZAPINE [Suspect]
     Indication: SCHIZOPHRENIA, PARANOID TYPE
     Dosage: 5 MG, DAILY (1/D)
     Route: 048
     Dates: start: 20060929, end: 20061011
  2. LULLAN                                  /JPN/ [Concomitant]
     Indication: SCHIZOPHRENIA
     Dosage: 24 MG, DAILY (1/D)
     Route: 048
     Dates: start: 20060905, end: 20061011
  3. VALERIN [Concomitant]
     Dosage: 600 MG, DAILY (1/D)
     Route: 048
     Dates: end: 20061011
  4. TEGRETOL [Concomitant]
     Dosage: 1200 MG, DAILY (1/D)
     Route: 048
     Dates: end: 20061011
  5. ARTANE [Concomitant]
     Indication: EXTRAPYRAMIDAL DISORDER
     Dosage: 6 MG, DAILY (1/D)
     Route: 048
     Dates: end: 20061011
  6. NITRENDIPINE [Concomitant]
     Indication: HYPERTENSION
     Dosage: 20 MG, DAILY (1/D)
     Route: 048
     Dates: end: 20061011
  7. MICARDIS [Concomitant]
     Indication: HYPERTENSION
     Dosage: 40 MG, DAILY (1/D)
     Route: 048
  8. FERO-GRAD [Concomitant]
     Indication: SCHIZOPHRENIA
     Dosage: 1 D/F, DAILY (1/D)
     Route: 048
     Dates: end: 20061011

REACTIONS (3)
  - ATELECTASIS [None]
  - ILEUS PARALYTIC [None]
  - PNEUMONIA [None]
